FAERS Safety Report 6359883-0 (Version None)
Quarter: 2009Q3

REPORT INFORMATION
  Report Type: 
  Country: None (occurrence: None)
  Receive Date: 20090917
  Receipt Date: 20090909
  Transmission Date: 20100115
  Serious: Yes (Other)
  Sender: FDA-Public Use
  Company Number: US-AMGEN-QUU363782

PATIENT
  Sex: Female

DRUGS (2)
  1. ENBREL [Suspect]
     Indication: RHEUMATOID ARTHRITIS
     Route: 058
     Dates: start: 20090601
  2. PLAQUENIL [Concomitant]
     Route: 048

REACTIONS (8)
  - ANORECTAL DISORDER [None]
  - BURNING SENSATION MUCOSAL [None]
  - INJECTION SITE ERYTHEMA [None]
  - INJECTION SITE HAEMATOMA [None]
  - OPEN WOUND [None]
  - RECTAL HAEMORRHAGE [None]
  - VULVOVAGINAL DISCOMFORT [None]
  - WOUND SECRETION [None]
